FAERS Safety Report 24833157 (Version 1)
Quarter: 2025Q1

REPORT INFORMATION
  Report Type: Spontaneous
  Country: US (occurrence: US)
  Receive Date: 20250111
  Receipt Date: 20250111
  Transmission Date: 20250408
  Serious: Yes (Hospitalization)
  Sender: Norvium Bioscience
  Company Number: US-Norvium Bioscience LLC-079770

PATIENT
  Age: 74 Year
  Sex: Male

DRUGS (1)
  1. AMLODIPINE BESYLATE [Suspect]
     Active Substance: AMLODIPINE BESYLATE
     Indication: Suicide attempt
     Route: 048

REACTIONS (4)
  - Intentional overdose [Unknown]
  - Sinus bradycardia [Recovered/Resolved]
  - Hypotension [Recovered/Resolved]
  - Hyperglycinaemia [Recovered/Resolved]
